FAERS Safety Report 8166491-8 (Version None)
Quarter: 2012Q1

REPORT INFORMATION
  Report Type: 
  Country: None (occurrence: None)
  Receive Date: 20120227
  Receipt Date: 20111021
  Transmission Date: 20120608
  Serious: No
  Sender: FDA-Public Use
  Company Number: US-MYLANLABS-2011S1019302

PATIENT
  Age: 39 Year
  Sex: Female
  Weight: 116.12 kg

DRUGS (2)
  1. AMNESTEEM [Suspect]
     Indication: ACNE CYSTIC
     Route: 048
     Dates: start: 20110513, end: 20110801
  2. AMNESTEEM [Suspect]
     Indication: ACNE
     Route: 048
     Dates: start: 20110513, end: 20110801

REACTIONS (4)
  - FATIGUE [None]
  - ARTHRALGIA [None]
  - MYALGIA [None]
  - JOINT STIFFNESS [None]
